FAERS Safety Report 16964280 (Version 1)
Quarter: 2019Q4

REPORT INFORMATION
  Report Type: Spontaneous
  Country: US (occurrence: US)
  Receive Date: 20191026
  Receipt Date: 20191026
  Transmission Date: 20200122
  Serious: Yes (Other)
  Sender: FDA-Public Use
  Company Number: None

PATIENT
  Age: 38 Year
  Weight: 72 kg

DRUGS (5)
  1. VIT B [Concomitant]
     Active Substance: VITAMIN B
  2. AIMOVIG [Concomitant]
     Active Substance: ERENUMAB-AOOE
  3. TESTOSTERONE GEL 1.62% [Suspect]
     Active Substance: TESTOSTERONE
     Indication: HORMONE REPLACEMENT THERAPY
     Dosage: ?          QUANTITY:3 PUMP;?
     Route: 061
     Dates: start: 20191008, end: 20191022
  4. VIT D [Concomitant]
     Active Substance: VITAMIN D NOS
  5. TESTOSTERONE. [Concomitant]
     Active Substance: TESTOSTERONE

REACTIONS (5)
  - Disorientation [None]
  - Product substitution issue [None]
  - Gastrointestinal motility disorder [None]
  - Dizziness [None]
  - Dyspepsia [None]

NARRATIVE: CASE EVENT DATE: 20191023
